FAERS Safety Report 22265628 (Version 1)
Quarter: 2023Q2

REPORT INFORMATION
  Report Type: Spontaneous
  Country: US (occurrence: None)
  Receive Date: 20230426
  Receipt Date: 20230426
  Transmission Date: 20230721
  Serious: Yes (Other)
  Sender: FDA-Public Use
  Company Number: None

PATIENT
  Age: 57 Year
  Sex: Male

DRUGS (1)
  1. STELARA [Suspect]
     Active Substance: USTEKINUMAB
     Indication: Crohn^s disease
     Dosage: FREQUENCY : AS DIRECTED;?
     Route: 058
     Dates: start: 20210615

REACTIONS (4)
  - Crohn^s disease [None]
  - Quality of life decreased [None]
  - Insurance issue [None]
  - Therapy interrupted [None]

NARRATIVE: CASE EVENT DATE: 20230301
